FAERS Safety Report 5986573-6 (Version None)
Quarter: 2008Q4

REPORT INFORMATION
  Report Type: 
  Country: None (occurrence: None)
  Receive Date: 20081203
  Receipt Date: 20081119
  Transmission Date: 20090506
  Serious: Yes (Life-Threatening, Other)
  Sender: FDA-Public Use
  Company Number: 08-063

PATIENT
  Age: 78 Year
  Sex: Female

DRUGS (2)
  1. CEFAZOLIN [Suspect]
     Indication: ANTIBIOTIC PROPHYLAXIS
     Dosage: 25-50MG, ONECE+INTRATHECA
  2. OMNIPAQUE 140 [Concomitant]

REACTIONS (5)
  - ANAESTHETIC COMPLICATION [None]
  - CONVULSION [None]
  - INTRACRANIAL HYPOTENSION [None]
  - MENTAL STATUS CHANGES [None]
  - STUPOR [None]
